FAERS Safety Report 18153092 (Version 3)
Quarter: 2021Q2

REPORT INFORMATION
  Report Type: Spontaneous
  Country: JP (occurrence: JP)
  Receive Date: 20200815
  Receipt Date: 20210611
  Transmission Date: 20210717
  Serious: Yes (Other)
  Sender: FDA-Public Use
  Company Number: JP-ROCHE-2658791

PATIENT
  Age: 73 Year
  Sex: Male

DRUGS (3)
  1. LUCENTIS [Suspect]
     Active Substance: RANIBIZUMAB
     Indication: AGE-RELATED MACULAR DEGENERATION
     Dosage: UNK
     Route: 050
     Dates: start: 20200326
  2. BEOVU [Suspect]
     Active Substance: BROLUCIZUMAB-DBLL
     Indication: AGE-RELATED MACULAR DEGENERATION
     Dosage: 0.05 ML
     Route: 050
     Dates: start: 20200604
  3. LUCENTIS [Suspect]
     Active Substance: RANIBIZUMAB
     Dosage: UNK
     Route: 050
     Dates: start: 20200430

REACTIONS (5)
  - Corneal disorder [Recovered/Resolved]
  - Visual acuity reduced [Unknown]
  - Iritis [Recovered/Resolved]
  - Vision blurred [Recovered/Resolved]
  - Corneal endotheliitis [Recovered/Resolved]

NARRATIVE: CASE EVENT DATE: 20200619
